FAERS Safety Report 6240257-8 (Version None)
Quarter: 2009Q2

REPORT INFORMATION
  Report Type: 
  Country: None (occurrence: None)
  Receive Date: 20090623
  Receipt Date: 20080513
  Transmission Date: 20091009
  Serious: No
  Sender: FDA-Public Use
  Company Number: US-ASTRAZENECA-2008UW09832

PATIENT
  Age: 5 Year
  Sex: Female

DRUGS (4)
  1. PULMICORT RESPULES [Suspect]
     Indication: ASTHMA
     Dosage: 0.5 MG BID THEN .025 BID
     Route: 055
     Dates: start: 20080401
  2. XOPENEX [Concomitant]
  3. SINGULAIR [Concomitant]
  4. ZYRTEC [Concomitant]

REACTIONS (2)
  - DIZZINESS [None]
  - HEADACHE [None]
